FAERS Safety Report 8953231 (Version 2)
Quarter: 2013Q1

REPORT INFORMATION
  Report Type: Spontaneous
  Country: US (occurrence: US)
  Receive Date: 20121206
  Receipt Date: 20130128
  Transmission Date: 20140127
  Serious: Yes (Other)
  Sender: FDA-Public Use
  Company Number: US-AMGEN-USASP2012077272

PATIENT
  Age: 64 Year
  Sex: Female
  Weight: 70.3 kg

DRUGS (2)
  1. NEUPOGEN [Suspect]
     Indication: NEUTROPENIA
     Dosage: 300 MUG, QD
     Route: 058
     Dates: start: 20120827, end: 20121221
  2. CHEMOTHERAPEUTICS [Concomitant]
     Indication: OVARIAN CANCER
     Dosage: UNK

REACTIONS (1)
  - Neutrophil count decreased [Recovered/Resolved]
